FAERS Safety Report 7982383-9 (Version None)
Quarter: 2011Q4

REPORT INFORMATION
  Report Type: 
  Country: None (occurrence: None)
  Receive Date: 20111215
  Receipt Date: 20111207
  Transmission Date: 20120403
  Serious: Yes (Hospitalization, Other)
  Sender: FDA-Public Use
  Company Number: PHEH2011US02862

PATIENT
  Sex: Male

DRUGS (5)
  1. EXJADE [Suspect]
     Dosage: UNK UKN, UNK (3 TABLETS EVERY MORNING)
     Dates: start: 20110105
  2. EXJADE [Suspect]
     Dosage: 3000 MG
     Route: 048
     Dates: end: 20110628
  3. EXJADE [Suspect]
     Dosage: 3000 MG, QD
     Route: 048
  4. AGGRENOX [Concomitant]
     Dosage: UNK UKN, UNK (Q12HR)
     Route: 048
  5. EXJADE [Suspect]
     Dosage: UNK UKN, UNK(SIX TABLETS IN 7OZ H2O)
     Dates: start: 20110131

REACTIONS (6)
  - RENAL INJURY [None]
  - URINE OUTPUT DECREASED [None]
  - BLOOD CREATININE INCREASED [None]
  - CEREBROVASCULAR ACCIDENT [None]
  - ARTHRALGIA [None]
  - MALAISE [None]
